FAERS Safety Report 15289576 (Version 1)
Quarter: 2018Q3

REPORT INFORMATION
  Report Type: Spontaneous
  Country: US (occurrence: US)
  Receive Date: 20180803
  Receipt Date: 20180803
  Transmission Date: 20181010
  Serious: No
  Sender: FDA-Public Use
  Company Number: None

PATIENT
  Age: 71 Year
  Sex: Female
  Weight: 45.9 kg

DRUGS (10)
  1. DOCUSATE [Concomitant]
     Active Substance: DOCUSATE
  2. TURMERIC [Concomitant]
     Active Substance: HERBALS\TURMERIC
  3. GEMCITABINE [Concomitant]
     Active Substance: GEMCITABINE\GEMCITABINE HYDROCHLORIDE
  4. MULTI FOR HER 50+ [Concomitant]
  5. MILK THISTLE [Concomitant]
     Active Substance: DIETARY SUPPLEMENT\HERBALS\MILK THISTLE
  6. LIPITOR [Concomitant]
     Active Substance: ATORVASTATIN CALCIUM
  7. HYDROCHLOROZIDE [Concomitant]
  8. MELATONIN [Concomitant]
     Active Substance: MELATONIN
  9. SENNA?LAX [Concomitant]
     Active Substance: SENNOSIDES
  10. CAPECITABINE. [Suspect]
     Active Substance: CAPECITABINE
     Indication: BILE DUCT CANCER
     Route: 048

REACTIONS (2)
  - Abdominal pain upper [None]
  - Rash [None]
